FAERS Safety Report 6223698-4 (Version None)
Quarter: 2009Q2

REPORT INFORMATION
  Report Type: 
  Country: None (occurrence: None)
  Receive Date: 20090611
  Receipt Date: 20090417
  Transmission Date: 20091009
  Serious: No
  Sender: FDA-Public Use
  Company Number: US-ABBOTT-08P-163-0483683-00

PATIENT
  Sex: Female
  Weight: 52.21 kg

DRUGS (7)
  1. HUMIRA [Suspect]
     Indication: PSORIASIS
     Route: 058
     Dates: start: 20080523, end: 20081001
  2. HUMIRA [Suspect]
     Route: 058
  3. HORMONE REPLACEMENT [Concomitant]
     Indication: DRUG USE FOR UNKNOWN INDICATION
  4. LIPITOR [Concomitant]
     Indication: BLOOD CHOLESTEROL INCREASED
     Route: 048
  5. XANAX [Concomitant]
     Indication: ESSENTIAL TREMOR
     Route: 048
  6. COMBIPATCH [Concomitant]
     Indication: HORMONE REPLACEMENT THERAPY
     Route: 061
  7. ZITHROMAX [Concomitant]
     Indication: SINUSITIS
     Route: 048
     Dates: start: 20081023

REACTIONS (8)
  - CHEST DISCOMFORT [None]
  - COUGH [None]
  - LARYNGITIS [None]
  - ORAL HERPES [None]
  - PHARYNGEAL OEDEMA [None]
  - SINUS CONGESTION [None]
  - SINUSITIS [None]
  - TOOTHACHE [None]
